FAERS Safety Report 17578793 (Version 1)
Quarter: 2020Q1

REPORT INFORMATION
  Report Type: Spontaneous
  Country: US (occurrence: US)
  Receive Date: 20200324
  Receipt Date: 20200324
  Transmission Date: 20200409
  Serious: Yes (Hospitalization, Other)
  Sender: FDA-Public Use
  Company Number: US-TEVA-2020-US-1208941

PATIENT
  Age: 62 Year
  Sex: Male

DRUGS (8)
  1. MYCOPHENOLATE MOFETIL. [Suspect]
     Active Substance: MYCOPHENOLATE MOFETIL
     Route: 048
  2. NIVOLUMAB [Suspect]
     Active Substance: NIVOLUMAB
     Indication: METASTATIC RENAL CELL CARCINOMA
     Dosage: 3MG/KG PER DOSE; RECEIVED THREE CYCLES OF 21-DAY EACH.
     Route: 065
  3. IPILIMUMAB [Suspect]
     Active Substance: IPILIMUMAB
     Indication: METASTATIC RENAL CELL CARCINOMA
     Dosage: 1MG/KG PER DOSE; RECEIVED 3 CYCLES OF 21-DAYS EACH
     Route: 065
  4. RITUXIMAB. [Suspect]
     Active Substance: RITUXIMAB
     Indication: AUTOIMMUNE HEPATITIS
     Dosage: 375 MG/M2 ONCE IN 3 WEEKS; 2 DOSES
     Route: 065
  5. METHYLPREDNISOLONE. [Suspect]
     Active Substance: METHYLPREDNISOLONE
     Indication: AUTOIMMUNE HEPATITIS
     Dosage: 2 MG/KG DAILY; 1 MG/KG TWICE PER DAY; HIGH DOSE
     Route: 042
  6. PREDNISONE. [Suspect]
     Active Substance: PREDNISONE
     Indication: AUTOIMMUNE HEPATITIS
     Dosage: 60 MILLIGRAM DAILY; HIGH DOSE; DOSE TAPERING OVER A MONTH
     Route: 048
  7. MYCOPHENOLATE MOFETIL. [Suspect]
     Active Substance: MYCOPHENOLATE MOFETIL
     Indication: AUTOIMMUNE HEPATITIS
     Dosage: 1000 MILLIGRAM DAILY; INITIATED AFTER 1 WEEK OF CORTICOSTEROID THERAPY
     Route: 048
  8. METHYLPREDNISOLONE. [Suspect]
     Active Substance: METHYLPREDNISOLONE
     Dosage: HIGH DOSE; FOR ONE MONTH AND THAN TAPERED OFF IN 2 MONTHS
     Route: 042

REACTIONS (3)
  - Necrotising soft tissue infection [Recovering/Resolving]
  - Aspergillus infection [Recovering/Resolving]
  - Autoimmune hepatitis [Unknown]
